FAERS Safety Report 8467057 (Version 2)
Quarter: 2012Q4

REPORT INFORMATION
  Report Type: 
  Country: CH (occurrence: CH)
  Receive Date: 20120320
  Receipt Date: 20120924
  Transmission Date: 20130627
  Serious: Yes (Death)
  Sender: FDA-Public Use
  Company Number: CH-ASTELLAS-2012US002843

PATIENT
  Age: 68 Year
  Sex: Female

DRUGS (2)
  1. AMBISOME [Suspect]
     Indication: BLASTOMYCOSIS
     Dosage: UNK
     Route: 065
     Dates: start: 20100807, end: 20100815
  2. VORICONAZOLE [Concomitant]
     Indication: PRODUCT USED FOR UNKNOWN INDICATION
     Dosage: UNK
     Route: 065

REACTIONS (1)
  - Drug ineffective [Fatal]
